FAERS Safety Report 9009110 (Version 1)
Quarter: 2013Q1

REPORT INFORMATION
  Report Type: Spontaneous
  Country: US (occurrence: US)
  Receive Date: 20130111
  Receipt Date: 20130111
  Transmission Date: 20140127
  Serious: No
  Sender: FDA-Public Use
  Company Number: US-GLAXOSMITHKLINE-A0997326A

PATIENT
  Age: 56 Year
  Sex: Male

DRUGS (3)
  1. JALYN [Suspect]
     Indication: PROSTATOMEGALY
     Dosage: 1CAP PER DAY
     Route: 048
     Dates: start: 20121005
  2. LISINOPRIL [Concomitant]
  3. DILTIAZEM [Concomitant]

REACTIONS (1)
  - Ejaculation disorder [Not Recovered/Not Resolved]
